FAERS Safety Report 17000226 (Version 1)
Quarter: 2019Q4

REPORT INFORMATION
  Report Type: Other
  Country: CA (occurrence: CA)
  Receive Date: 20191106
  Receipt Date: 20191106
  Transmission Date: 20200122
  Serious: Yes (Death, Other)
  Sender: FDA-Public Use
  Company Number: CA-PFIZER INC-2019475925

PATIENT
  Sex: Female

DRUGS (5)
  1. WARFARIN [Suspect]
     Active Substance: WARFARIN
     Dosage: UNK
     Route: 065
  2. DOCETAXEL. [Suspect]
     Active Substance: DOCETAXEL
     Dosage: 15 MG/M2, UNK (11 EVERY 1 WEEK(S))
     Route: 042
  3. CELEBREX [Suspect]
     Active Substance: CELECOXIB
     Dosage: 200 MG, 2X/DAY
     Route: 048
  4. XELODA [Suspect]
     Active Substance: CAPECITABINE
     Dosage: 1250 MG/M2, 1X/DAY
     Route: 048
  5. DEXAMETHASONE. [Concomitant]
     Active Substance: DEXAMETHASONE
     Dosage: UNK

REACTIONS (4)
  - Febrile neutropenia [Fatal]
  - Gastrointestinal haemorrhage [Fatal]
  - Nail disorder [Fatal]
  - Vomiting [Fatal]
